FAERS Safety Report 23806786 (Version 1)
Quarter: 2024Q2

REPORT INFORMATION
  Report Type: Report from Study
  Country: US (occurrence: US)
  Receive Date: 20240502
  Receipt Date: 20240502
  Transmission Date: 20240716
  Serious: Yes (Hospitalization, Other)
  Sender: FDA-Public Use
  Company Number: US-UCBSA-2024009628

PATIENT
  Age: 39 Year
  Sex: Male
  Weight: 47.619 kg

DRUGS (2)
  1. FINTEPLA [Suspect]
     Active Substance: FENFLURAMINE
     Indication: Lennox-Gastaut syndrome
     Dosage: 3 MILLILITER, 2X/DAY (BID)
     Dates: start: 20231106
  2. FINTEPLA [Suspect]
     Active Substance: FENFLURAMINE
     Dosage: 3 MILLILITER, 2X/DAY (BID)

REACTIONS (8)
  - Implant site infection [Recovered/Resolved]
  - Vagal nerve stimulator removal [Not Recovered/Not Resolved]
  - Suture rupture [Unknown]
  - Pharyngeal swelling [Recovered/Resolved]
  - Pharyngeal erythema [Recovered/Resolved]
  - Pleural effusion [Recovering/Resolving]
  - Cough [Recovered/Resolved]
  - Vagal nerve stimulator implantation [Unknown]

NARRATIVE: CASE EVENT DATE: 20240205
